FAERS Safety Report 4863160-4 (Version None)
Quarter: 2005Q4

REPORT INFORMATION
  Report Type: 
  Country: None (occurrence: None)
  Receive Date: 20051216
  Receipt Date: 20051201
  Transmission Date: 20060501
  Serious: Yes (Hospitalization)
  Sender: FDA-Public Use
  Company Number: THYM-10764

PATIENT
  Age: 64 Year
  Sex: Male
  Weight: 94.3482 kg

DRUGS (7)
  1. THYMOGLOBULIN [Suspect]
     Indication: RENAL TRANSPLANT
     Dosage: 125 MG QD IV
     Route: 042
     Dates: start: 20050826, end: 20050828
  2. THYMOGLOBULIN [Suspect]
     Indication: RENAL TRANSPLANT
     Dosage: 125 MG QD IV
     Route: 042
     Dates: start: 20050830, end: 20050830
  3. SOLU-MEDROL [Concomitant]
  4. BENADRYL [Concomitant]
  5. TYLENOL [Concomitant]
  6. CELLCEPT [Concomitant]
  7. PREDNISONE 50MG TAB [Concomitant]

REACTIONS (20)
  - ARTHRALGIA [None]
  - ATRIAL FIBRILLATION [None]
  - CANDIDURIA [None]
  - CHRONIC OBSTRUCTIVE PULMONARY DISEASE [None]
  - CLOSTRIDIUM DIFFICILE TOXIN TEST POSITIVE [None]
  - DEPRESSION [None]
  - DIABETES MELLITUS [None]
  - FALL [None]
  - FLUID OVERLOAD [None]
  - HYPOXIA [None]
  - KIDNEY TRANSPLANT REJECTION [None]
  - LOBAR PNEUMONIA [None]
  - LUNG INFECTION PSEUDOMONAL [None]
  - MORGANELLA INFECTION [None]
  - RENAL FAILURE [None]
  - RENAL TUBULAR NECROSIS [None]
  - RESPIRATORY FAILURE [None]
  - TRANSPLANT FAILURE [None]
  - URINARY TRACT INFECTION PSEUDOMONAL [None]
  - UROSEPSIS [None]
